FAERS Safety Report 5216077-X (Version None)
Quarter: 2007Q1

REPORT INFORMATION
  Report Type: 
  Country: None (occurrence: None)
  Receive Date: 20070123
  Receipt Date: 20070111
  Transmission Date: 20070707
  Serious: Yes (Hospitalization, Other)
  Sender: FDA-Public Use
  Company Number: US-PFIZER INC-2006149226

PATIENT
  Sex: Female
  Weight: 69.9 kg

DRUGS (8)
  1. CHANTIX [Suspect]
     Indication: NICOTINE DEPENDENCE
     Route: 048
  2. ADVAIR DISKUS 100/50 [Concomitant]
  3. SPIRIVA [Concomitant]
  4. ANTIBIOTICS [Concomitant]
  5. ALBUTEROL SULFATE/IPRATROPIUM BROMIDE [Concomitant]
  6. GUAIFENESIN [Concomitant]
  7. LEVAQUIN [Concomitant]
     Route: 042
  8. SOLU-MEDROL [Concomitant]
     Route: 042

REACTIONS (2)
  - HEART RATE DECREASED [None]
  - PNEUMONIA [None]
